FAERS Safety Report 12295443 (Version 2)
Quarter: 2016Q2

REPORT INFORMATION
  Report Type: Spontaneous
  Country: US (occurrence: US)
  Receive Date: 20160422
  Receipt Date: 20160603
  Transmission Date: 20160815
  Serious: Yes (Death, Hospitalization)
  Sender: FDA-Public Use
  Company Number: US-JNJFOC-20160419381

PATIENT
  Age: 69 Year
  Sex: Male

DRUGS (1)
  1. XARELTO [Suspect]
     Active Substance: RIVAROXABAN
     Indication: DEEP VEIN THROMBOSIS
     Route: 048
     Dates: start: 20131031, end: 20140928

REACTIONS (3)
  - Peripheral vascular disorder [Fatal]
  - Myocardial infarction [Fatal]
  - Hypovolaemic shock [Unknown]

NARRATIVE: CASE EVENT DATE: 20140929
